FAERS Safety Report 4547025-3 (Version None)
Quarter: 2004Q4

REPORT INFORMATION
  Report Type: 
  Country: None (occurrence: None)
  Receive Date: 20041223
  Receipt Date: 20041018
  Transmission Date: 20050328
  Serious: No
  Sender: FDA-Public Use
  Company Number: US-JNJFOC-20041006168

PATIENT
  Age: 33 Year
  Sex: Female
  Weight: 127.0072 kg

DRUGS (9)
  1. ORTHO EVRA [Suspect]
     Indication: CONTRACEPTION
     Dosage: 1 DOSE(S), 3 IN 4 WEEK, TRANSDERMAL
     Route: 062
  2. ALBUTEROL [Concomitant]
  3. PREDNISONE [Concomitant]
  4. THEOPHYLLINE [Concomitant]
  5. ADVAIR (SERETIDE MITE) [Concomitant]
  6. PROZAC [Concomitant]
  7. NEXIUM [Concomitant]
  8. CELEBREX [Concomitant]
  9. ALBUTEROL (SALBUTAMOL) TABLETS [Concomitant]

REACTIONS (1)
  - METRORRHAGIA [None]
